FAERS Safety Report 15292395 (Version 1)
Quarter: 2018Q3

REPORT INFORMATION
  Report Type: Spontaneous
  Country: US (occurrence: US)
  Receive Date: 20180806
  Receipt Date: 20180806
  Transmission Date: 20181010
  Serious: Yes (Disabling)
  Sender: FDA-Public Use
  Company Number: None

PATIENT

DRUGS (1)
  1. CHOLESTYRAMINE. [Suspect]
     Active Substance: CHOLESTYRAMINE
     Indication: UNEVALUABLE EVENT
     Route: 048
     Dates: end: 20180301

REACTIONS (2)
  - Psoriatic arthropathy [None]
  - Psoriasis [None]

NARRATIVE: CASE EVENT DATE: 20080808
